FAERS Safety Report 7668745-8 (Version None)
Quarter: 2011Q3

REPORT INFORMATION
  Report Type: 
  Country: None (occurrence: None)
  Receive Date: 20110803
  Receipt Date: 20110725
  Transmission Date: 20111222
  Serious: Yes (Death, Life-Threatening)
  Sender: FDA-Public Use
  Company Number: NL-ACCORD-010116

PATIENT
  Age: 53 Year
  Sex: Female

DRUGS (1)
  1. GEMCITABINE [Suspect]
     Indication: BREAST CANCER
     Dosage: 1250.00MG/M2

REACTIONS (22)
  - HYPERCALCAEMIA [None]
  - CEREBRAL MICROANGIOPATHY [None]
  - SHOCK [None]
  - HEPATIC NECROSIS [None]
  - METASTASES TO OVARY [None]
  - COOMBS NEGATIVE HAEMOLYTIC ANAEMIA [None]
  - RENAL TUBULAR NECROSIS [None]
  - GAIT DISTURBANCE [None]
  - HYPERTENSION [None]
  - JAUNDICE [None]
  - GENERAL PHYSICAL HEALTH DETERIORATION [None]
  - HEMIPARESIS [None]
  - HAEMORRHAGE [None]
  - THROMBOTIC MICROANGIOPATHY [None]
  - HAEMORRHAGIC CEREBRAL INFARCTION [None]
  - METASTASES TO LUNG [None]
  - METASTASES TO PERITONEUM [None]
  - HYPERBILIRUBINAEMIA [None]
  - VISION BLURRED [None]
  - SOMNOLENCE [None]
  - NYSTAGMUS [None]
  - PYREXIA [None]
